FAERS Safety Report 9164715 (Version 1)
Quarter: 2013Q1

REPORT INFORMATION
  Report Type: Other
  Country: IT (occurrence: IT)
  Receive Date: 20130315
  Receipt Date: 20130315
  Transmission Date: 20140127
  Serious: Yes (Hospitalization)
  Sender: FDA-Public Use
  Company Number: IT-MILLENNIUM PHARMACEUTICALS, INC.-2013-01938

PATIENT
  Sex: 0

DRUGS (1)
  1. VELCADE [Suspect]
     Indication: PLASMA CELL MYELOMA
     Dosage: 2 MG, UNK
     Route: 065
     Dates: start: 20120619, end: 20121224

REACTIONS (2)
  - Intestinal obstruction [Recovered/Resolved]
  - Gastrointestinal disorder [Recovered/Resolved]
